FAERS Safety Report 5980103-0 (Version None)
Quarter: 2008Q4

REPORT INFORMATION
  Report Type: 
  Country: None (occurrence: None)
  Receive Date: 20081202
  Receipt Date: 20081202
  Transmission Date: 20090506
  Serious: Yes (Other)
  Sender: FDA-Public Use
  Company Number: None

PATIENT
  Age: 7 Year
  Sex: Male
  Weight: 20.4119 kg

DRUGS (1)
  1. FOCALIN XR [Suspect]
     Indication: ATTENTION DEFICIT/HYPERACTIVITY DISORDER
     Dosage: 1 TABLET PER DAY PO
     Route: 048
     Dates: start: 20080301, end: 20081104

REACTIONS (4)
  - CONTRAINDICATION TO MEDICAL TREATMENT [None]
  - CRYING [None]
  - SUICIDE ATTEMPT [None]
  - WEIGHT DECREASED [None]
